FAERS Safety Report 12070891 (Version 2)
Quarter: 2016Q1

REPORT INFORMATION
  Report Type: Spontaneous
  Country: US (occurrence: US)
  Receive Date: 20160211
  Receipt Date: 20160329
  Transmission Date: 20160526
  Serious: Yes (Hospitalization)
  Sender: FDA-Public Use
  Company Number: US-BAYER-2016-026849

PATIENT
  Age: 17 Year
  Sex: Female
  Weight: 83.9 kg

DRUGS (3)
  1. FLAGYL [Concomitant]
     Active Substance: METRONIDAZOLE\METRONIDAZOLE HYDROCHLORIDE
  2. MIRENA [Suspect]
     Active Substance: LEVONORGESTREL
     Indication: CONTRACEPTION
     Dosage: 20 MCG/24HR, CONT
     Route: 015
     Dates: start: 20040526, end: 20090807
  3. DEPO-PROVERA [Concomitant]
     Active Substance: MEDROXYPROGESTERONE ACETATE
     Dosage: UNK
     Dates: start: 200308, end: 20040526

REACTIONS (7)
  - Device issue [None]
  - Device issue [None]
  - Depression [None]
  - Embedded device [None]
  - Anxiety [None]
  - Procedural haemorrhage [None]
  - Device difficult to use [None]

NARRATIVE: CASE EVENT DATE: 200408
